FAERS Safety Report 4398082-9 (Version None)
Quarter: 2004Q3

REPORT INFORMATION
  Report Type: 
  Country: None (occurrence: None)
  Receive Date: 20040713
  Receipt Date: 20040630
  Transmission Date: 20050211
  Serious: Yes (Hospitalization)
  Sender: FDA-Public Use
  Company Number: 2004044613

PATIENT
  Sex: Female

DRUGS (1)
  1. LIPITOR [Suspect]
     Indication: DYSLIPIDAEMIA
     Dosage: 10 MG 10 MG, 1 IN 1 D), ORAL
     Route: 048
     Dates: start: 20040601

REACTIONS (1)
  - ARTERIAL BYPASS OPERATION [None]
